FAERS Safety Report 8984276 (Version 1)
Quarter: 2012Q4

REPORT INFORMATION
  Report Type: Spontaneous
  Country: US (occurrence: None)
  Receive Date: 20121214
  Receipt Date: 20121214
  Transmission Date: 20130627
  Serious: Yes (Other)
  Sender: FDA-Public Use
  Company Number: US-010304

PATIENT
  Age: 84 Year
  Sex: Male
  Weight: 85.28 kg

DRUGS (9)
  1. DEGARELIX [Suspect]
     Indication: PRODUCT USED FOR UNKNOWN INDICATION
     Dosage: 2 injections of unknown dosage
     Dates: start: 201211
  2. JANUVIA [Concomitant]
  3. GLYBURIDE [Concomitant]
  4. THYROXINE [Concomitant]
  5. ASA [Concomitant]
  6. ATENOLOL [Concomitant]
  7. LISINOPRIL [Concomitant]
  8. PRAVASTATIN [Concomitant]
  9. TAMSULOSIN [Concomitant]

REACTIONS (5)
  - Hypoglycaemia [None]
  - Hyperaesthesia [None]
  - Decreased appetite [None]
  - Weight decreased [None]
  - Screaming [None]
